FAERS Safety Report 9820389 (Version 5)
Quarter: 2014Q2

REPORT INFORMATION
  Report Type: Spontaneous
  Country: US (occurrence: None)
  Receive Date: 20140114
  Receipt Date: 20140428
  Transmission Date: 20141212
  Serious: Yes (Other)
  Sender: FDA-Public Use
  Company Number: 2013US008699

PATIENT
  Age: 46 Year
  Sex: Female

DRUGS (2)
  1. GLASSIA [Suspect]
     Indication: ALPHA-1 ANTI-TRYPSIN DEFICIENCY
     Dosage: FRIDAYS EVERY WEEK,
     Route: 042
     Dates: start: 201307
  2. GLASSIA [Suspect]
     Dosage: FRIDAYS EVERY WEEK,
     Route: 042
     Dates: start: 201307

REACTIONS (2)
  - Bronchitis [None]
  - Chronic obstructive pulmonary disease [None]
